FAERS Safety Report 9290416 (Version 2)
Quarter: 2013Q3

REPORT INFORMATION
  Report Type: Spontaneous
  Country: US (occurrence: US)
  Receive Date: 20130515
  Receipt Date: 20130712
  Transmission Date: 20140515
  Serious: Yes (Disabling)
  Sender: FDA-Public Use
  Company Number: US-PFIZER INC-2013149081

PATIENT
  Age: 48 Year
  Sex: Female
  Weight: 77.1 kg

DRUGS (11)
  1. CELEBREX [Suspect]
     Indication: INFLAMMATION
     Dosage: 200 MG, 1X/DAY
     Dates: start: 2008
  2. RELPAX [Suspect]
     Indication: MIGRAINE
     Dosage: 40 MG, AS NEEDED
     Dates: start: 2000
  3. LYRICA [Suspect]
     Indication: FIBROMYALGIA
     Dosage: 150 MG, THREE OR FOUR TIMES A DAY
     Dates: start: 2008, end: 2012
  4. LYRICA [Suspect]
     Dosage: UNK
     Dates: start: 20121203, end: 20130506
  5. DEPAKOTE [Concomitant]
     Indication: MIGRAINE
     Dosage: 1500 MG, 1X/DAY
  6. CITALOPRAM [Concomitant]
     Indication: ANXIETY
     Dosage: 40 MG, 1X/DAY
  7. HYDROCHLOROTHIAZIDE [Concomitant]
     Indication: HYPERTENSION
     Dosage: 25 MG, 1X/DAY
  8. TOPIRAMATE [Concomitant]
     Indication: MIGRAINE
     Dosage: 100 MG, 2X/DAY
  9. BUPROPION [Concomitant]
     Indication: ANXIETY
     Dosage: 150 MG, 2X/DAY
  10. ZOLPIDEM [Concomitant]
     Indication: INSOMNIA
     Dosage: 10 MG, 1X/DAY
  11. CLONAZEPAM [Concomitant]
     Indication: INSOMNIA
     Dosage: 0.5 MG, 1X/DAY

REACTIONS (7)
  - Physical disability [Unknown]
  - Vitamin D decreased [Unknown]
  - Weight increased [Unknown]
  - Appetite disorder [Recovered/Resolved]
  - Personality disorder [Recovered/Resolved]
  - Mood altered [Recovered/Resolved]
  - Memory impairment [Recovered/Resolved]
